FAERS Safety Report 16766310 (Version 2)
Quarter: 2019Q4

REPORT INFORMATION
  Report Type: Spontaneous
  Country: GB (occurrence: GB)
  Receive Date: 20190903
  Receipt Date: 20191001
  Transmission Date: 20200122
  Serious: Yes (Hospitalization, Other)
  Sender: FDA-Public Use
  Company Number: GB-PFIZER INC-2019371456

PATIENT
  Age: 55 Year
  Sex: Male
  Weight: 113 kg

DRUGS (3)
  1. VIAGRA [Suspect]
     Active Substance: SILDENAFIL CITRATE
     Indication: ERECTILE DYSFUNCTION
     Dosage: 1 DF, 1X/DAY
     Dates: start: 20190727
  2. VIAGRA [Suspect]
     Active Substance: SILDENAFIL CITRATE
     Dosage: 1 DF, 1X/DAY
     Dates: start: 20190731
  3. VIAGRA [Suspect]
     Active Substance: SILDENAFIL CITRATE
     Dosage: 1 DF, 1X/DAY
     Dates: start: 20190804

REACTIONS (10)
  - Euphoric mood [Recovered/Resolved]
  - Eating disorder [Unknown]
  - Drug ineffective [Not Recovered/Not Resolved]
  - Feeling drunk [Unknown]
  - Mania [Recovered/Resolved]
  - Psychotic disorder [Recovered/Resolved]
  - Impulse-control disorder [Not Recovered/Not Resolved]
  - Aggression [Unknown]
  - Violence-related symptom [Unknown]
  - Suicidal ideation [Unknown]

NARRATIVE: CASE EVENT DATE: 20190727
